FAERS Safety Report 5154704-6 (Version None)
Quarter: 2006Q4

REPORT INFORMATION
  Report Type: 
  Country: None (occurrence: None)
  Receive Date: 20061116
  Receipt Date: 20061116
  Transmission Date: 20070319
  Serious: Yes (Hospitalization)
  Sender: FDA-Public Use
  Company Number: None

PATIENT
  Age: 54 Year
  Sex: Male

DRUGS (1)
  1. WARFARIN SODIUM [Suspect]
     Indication: MITRAL VALVE REPLACEMENT
     Dosage: 5/25 MG ALTERNATING DAILY PO
     Route: 048
     Dates: start: 20050913

REACTIONS (6)
  - CONTUSION [None]
  - DRUG TOXICITY [None]
  - EPISTAXIS [None]
  - HYPERTHYROIDISM [None]
  - INTERNATIONAL NORMALISED RATIO INCREASED [None]
  - MELAENA [None]
